FAERS Safety Report 25650342 (Version 2)
Quarter: 2025Q4

REPORT INFORMATION
  Report Type: Spontaneous
  Country: US (occurrence: US)
  Receive Date: 20250806
  Receipt Date: 20251210
  Transmission Date: 20260118
  Serious: Yes (Hospitalization, Other)
  Sender: ELI LILLY AND COMPANY
  Company Number: US-ELI_LILLY_AND_COMPANY-US202507027049

PATIENT
  Age: 75 Year
  Sex: Female
  Weight: 97.5 kg

DRUGS (3)
  1. MOUNJARO [Suspect]
     Active Substance: TIRZEPATIDE
     Indication: Type 2 diabetes mellitus
     Dosage: UNK UNK, UNKNOWN
     Route: 065
     Dates: start: 202301, end: 202304
  2. MOUNJARO [Suspect]
     Active Substance: TIRZEPATIDE
     Indication: Weight control
     Dosage: UNK UNK, WEEKLY (1/W) (0.5MG)
     Route: 065
     Dates: start: 20230209, end: 20230209
  3. METFORMIN [Concomitant]
     Active Substance: METFORMIN HYDROCHLORIDE
     Indication: Diabetes mellitus
     Dosage: UNK
     Dates: start: 20230501

REACTIONS (6)
  - Intestinal obstruction [Recovered/Resolved]
  - Ileus [Recovered/Resolved]
  - Nausea [Unknown]
  - Vomiting [Unknown]
  - Abdominal pain [Unknown]
  - Constipation [Unknown]

NARRATIVE: CASE EVENT DATE: 20230218
